FAERS Safety Report 7020367-8 (Version None)
Quarter: 2010Q3

REPORT INFORMATION
  Report Type: 
  Country: None (occurrence: None)
  Receive Date: 20100927
  Receipt Date: 20100916
  Transmission Date: 20110219
  Serious: Yes (Other)
  Sender: FDA-Public Use
  Company Number: 018835

PATIENT
  Sex: Female
  Weight: 2.1 kg

DRUGS (2)
  1. NEUPRO [Suspect]
     Indication: RESTLESS LEGS SYNDROME
     Dosage: TRANSPLACENTAL
     Route: 064
     Dates: start: 20090713, end: 20091203
  2. RIVOTRIL ((RIBOTRIL) (NOT SPECIFIED) [Suspect]
     Indication: RESTLESS LEGS SYNDROME
     Dosage: TRANSPLACENTAL
     Route: 064
     Dates: start: 20091203

REACTIONS (3)
  - MATERNAL DRUGS AFFECTING FOETUS [None]
  - MENINGITIS [None]
  - PREMATURE BABY [None]
